FAERS Safety Report 6387344-1 (Version None)
Quarter: 2009Q3

REPORT INFORMATION
  Report Type: 
  Country: None (occurrence: None)
  Receive Date: 20090930
  Receipt Date: 20090914
  Transmission Date: 20100115
  Serious: Yes (Death)
  Sender: FDA-Public Use
  Company Number: 2008AL009189

PATIENT
  Age: 60 Year
  Sex: Female
  Weight: 113.3993 kg

DRUGS (23)
  1. DIGOXIN [Suspect]
     Dosage: PO
     Route: 048
  2. MULTI-VITAMIN [Concomitant]
  3. LANTUS [Concomitant]
  4. LOPRESSOR [Concomitant]
  5. GLUCOPHAGE [Concomitant]
  6. LISINOPRIL [Concomitant]
  7. HALPRIN [Concomitant]
  8. INSULIN [Concomitant]
  9. TYLENOL (CAPLET) [Concomitant]
  10. LASIX [Concomitant]
  11. NIPRIDE [Concomitant]
  12. DOPAMINE HCL [Concomitant]
  13. AMIODARONE [Concomitant]
  14. TRAMADOL HCL [Concomitant]
  15. DEMADEX [Concomitant]
  16. LOVASTATIN [Concomitant]
  17. METFORMIN HYDROCHLORIDE [Concomitant]
  18. PLAVIX [Concomitant]
  19. SYNTHROID [Concomitant]
  20. ZESTRIL [Concomitant]
  21. NITROGLYCERIN [Concomitant]
  22. GABAPENTIN [Concomitant]
  23. LYRICA [Concomitant]

REACTIONS (17)
  - ATELECTASIS [None]
  - ATRIAL FIBRILLATION [None]
  - BLOOD PRESSURE SYSTOLIC INCREASED [None]
  - BLOOD UREA INCREASED [None]
  - CARDIAC DEATH [None]
  - CARDIAC FAILURE CONGESTIVE [None]
  - CAROTID ARTERY DISEASE [None]
  - CORONARY ARTERY DISEASE [None]
  - HEART RATE INCREASED [None]
  - HYPONATRAEMIA [None]
  - INJURY [None]
  - ISCHAEMIC CARDIOMYOPATHY [None]
  - MITRAL VALVE INCOMPETENCE [None]
  - PAIN [None]
  - PAIN IN EXTREMITY [None]
  - PLEURAL EFFUSION [None]
  - VENTRICULAR FIBRILLATION [None]
